FAERS Safety Report 13242692 (Version 1)
Quarter: 2017Q1

REPORT INFORMATION
  Report Type: Spontaneous
  Country: US (occurrence: US)
  Receive Date: 20170216
  Receipt Date: 20170216
  Transmission Date: 20170428
  Serious: No
  Sender: FDA-Public Use
  Company Number: US-009507513-1702USA003607

PATIENT
  Age: 73 Year
  Sex: Female
  Weight: 48.07 kg

DRUGS (3)
  1. WARFARIN [Suspect]
     Active Substance: WARFARIN
  2. KEYTRUDA [Suspect]
     Active Substance: PEMBROLIZUMAB
     Indication: NON-SMALL CELL LUNG CANCER
     Dosage: 500 ML BAG GIVEN EVERY 3 WEEKS
     Route: 041
  3. POTASSIUM (UNSPECIFIED) [Concomitant]
     Active Substance: POTASSIUM

REACTIONS (1)
  - International normalised ratio increased [Unknown]
